FAERS Safety Report 6947248-X (Version None)
Quarter: 2010Q3

REPORT INFORMATION
  Report Type: 
  Country: None (occurrence: None)
  Receive Date: 20100825
  Receipt Date: 20100809
  Transmission Date: 20110219
  Serious: Yes (Other)
  Sender: FDA-Public Use
  Company Number: A-US2004-05398

PATIENT
  Age: 17 Year
  Sex: Male

DRUGS (5)
  1. TRACLEER [Suspect]
     Indication: PULMONARY ARTERIAL HYPERTENSION
     Dosage: 62.5 MG, BID, ORAL; 93.75 MG, BID, ORAL
     Route: 048
     Dates: start: 20030613, end: 20030701
  2. TRACLEER [Suspect]
     Indication: PULMONARY ARTERIAL HYPERTENSION
     Dosage: 62.5 MG, BID, ORAL; 93.75 MG, BID, ORAL
     Route: 048
     Dates: start: 20030701, end: 20040309
  3. COUMADIN [Concomitant]
  4. FLOLAN [Concomitant]
  5. SILDENAFIL CITRATE [Concomitant]

REACTIONS (15)
  - ALANINE AMINOTRANSFERASE INCREASED [None]
  - ANTI-THYROID ANTIBODY [None]
  - ASPARTATE AMINOTRANSFERASE INCREASED [None]
  - BASEDOW'S DISEASE [None]
  - DIARRHOEA [None]
  - FEELING HOT [None]
  - GOITRE [None]
  - HYPERTHYROIDISM [None]
  - INTERNATIONAL NORMALISED RATIO INCREASED [None]
  - POLYGLANDULAR AUTOIMMUNE SYNDROME TYPE III [None]
  - THYROXINE INCREASED [None]
  - TREMOR [None]
  - TRI-IODOTHYRONINE INCREASED [None]
  - TYPE 1 DIABETES MELLITUS [None]
  - WEIGHT DECREASED [None]
